FAERS Safety Report 9888873 (Version 1)
Quarter: 2014Q1

REPORT INFORMATION
  Report Type: Spontaneous
  Country: US (occurrence: None)
  Receive Date: 20140210
  Receipt Date: 20140210
  Transmission Date: 20141002
  Serious: No
  Sender: FDA-Public Use
  Company Number: None

PATIENT
  Age: 47 Year
  Sex: Female
  Weight: 58.97 kg

DRUGS (1)
  1. MIRVASO [Suspect]
     Indication: ROSACEA
     Dosage: PEAC-SIZE AMT. TO FACE AREAS ONCE DAILY APPLIED TO A SURFACE USUALLY THE SKIN
     Route: 061
     Dates: start: 20140131, end: 20140206

REACTIONS (6)
  - Erythema [None]
  - Erythema [None]
  - Rosacea [None]
  - Sunburn [None]
  - Feeling hot [None]
  - Emotional distress [None]
